FAERS Safety Report 21729314 (Version 1)
Quarter: 2022Q4

REPORT INFORMATION
  Report Type: Spontaneous
  Country: US (occurrence: None)
  Receive Date: 20221214
  Receipt Date: 20221214
  Transmission Date: 20230113
  Serious: Yes (Death)
  Sender: FDA-Public Use
  Company Number: None

PATIENT
  Age: 29 Year
  Sex: Male
  Weight: 63 kg

DRUGS (4)
  1. BACTRIM [Suspect]
     Active Substance: SULFAMETHOXAZOLE\TRIMETHOPRIM
     Indication: Cellulitis
     Dosage: OTHER QUANTITY : 1 TABLET(S);?FREQUENCY : TWICE A DAY;?
     Route: 048
     Dates: start: 20220830, end: 20220907
  2. PAROXETINE [Concomitant]
     Active Substance: PAROXETINE
  3. VITAMIN D [Concomitant]
     Active Substance: VITAMIN D NOS
  4. VITAMINS [Concomitant]
     Active Substance: VITAMINS

REACTIONS (9)
  - Vomiting [None]
  - Diarrhoea [None]
  - Drug ineffective [None]
  - Rash [None]
  - Colectomy [None]
  - Blister [None]
  - Skin exfoliation [None]
  - Lung disorder [None]
  - Pyrexia [None]

NARRATIVE: CASE EVENT DATE: 20220908
